FAERS Safety Report 22241602 (Version 1)
Quarter: 2023Q2

REPORT INFORMATION
  Report Type: Report from Study
  Country: EG (occurrence: EG)
  Receive Date: 20230421
  Receipt Date: 20230421
  Transmission Date: 20230722
  Serious: Yes (Other)
  Sender: FDA-Public Use
  Company Number: EG-002147023-NVSC2023EG062787

PATIENT
  Age: 63 Year
  Sex: Male

DRUGS (9)
  1. HYRIMOZ [Suspect]
     Active Substance: ADALIMUMAB-ADAZ
     Indication: Rheumatoid arthritis
     Dosage: 80 MG, QMO
     Route: 058
     Dates: start: 202210, end: 202302
  2. HYRIMOZ [Suspect]
     Active Substance: ADALIMUMAB-ADAZ
     Dosage: 40 MG, Q2W (HE WAS ON THIS DOSE FOR 1 MONTH)
     Route: 058
     Dates: start: 20230304
  3. PLAVIX [Concomitant]
     Active Substance: CLOPIDOGREL BISULFATE
     Indication: Cardiac disorder
     Dosage: 1 DOSAGE FORM, QD (AT NIGHT)
     Route: 065
     Dates: start: 202203
  4. CHOLEROSE [Concomitant]
     Indication: Hyperlipidaemia
     Dosage: 1 DOSAGE FORM, QD (20/10, 3 OR 4 YEARS AGO, AT NIGHT)
     Route: 065
  5. CHOLEROSE [Concomitant]
     Indication: Hypertriglyceridaemia
  6. DAPAGLIFLOZIN [Concomitant]
     Active Substance: DAPAGLIFLOZIN
     Indication: Diabetes mellitus
     Dosage: 1 DOSAGE FORM, QD (AFTER BREAKFAST)
     Route: 065
     Dates: start: 202203
  7. METFORMIN HYDROCHLORIDE\VILDAGLIPTIN [Concomitant]
     Active Substance: METFORMIN HYDROCHLORIDE\VILDAGLIPTIN
     Indication: Diabetes mellitus
     Dosage: 1 DOSAGE FORM (AT NIGHT, 50/1000)
     Route: 065
     Dates: start: 202203
  8. ENTRESTO [Concomitant]
     Active Substance: SACUBITRIL\VALSARTAN
     Indication: Hypertension
     Dosage: 1 DOSAGE FORM, BID
     Route: 065
     Dates: start: 202203
  9. DEVAROL [Concomitant]
     Indication: Vitamin D deficiency
     Dosage: 1 DOSAGE FORM, Q2W (FOR 3 MONTHS)
     Route: 065
     Dates: start: 202203

REACTIONS (5)
  - Arthralgia [Recovering/Resolving]
  - Pain [Recovering/Resolving]
  - Pain in extremity [Recovering/Resolving]
  - Off label use [Unknown]
  - Drug ineffective [Recovering/Resolving]

NARRATIVE: CASE EVENT DATE: 20221001
